FAERS Safety Report 7574043-3 (Version None)
Quarter: 2011Q2

REPORT INFORMATION
  Report Type: 
  Country: None (occurrence: None)
  Receive Date: 20110621
  Receipt Date: 20110614
  Transmission Date: 20111010
  Serious: Yes (Hospitalization)
  Sender: FDA-Public Use
  Company Number: 2008-174108-NL

PATIENT
  Age: 44 Year
  Sex: Female
  Weight: 81.6 kg

DRUGS (3)
  1. FUROSEMIDE [Concomitant]
  2. LEVOTHYROXINE SODIUM [Concomitant]
  3. NUVARING [Suspect]
     Indication: CONTRACEPTION
     Dates: start: 20040804, end: 20041214

REACTIONS (9)
  - CONVULSION [None]
  - SUPERIOR SAGITTAL SINUS THROMBOSIS [None]
  - VENOUS STENOSIS [None]
  - EMBOLISM [None]
  - LIVEDO RETICULARIS [None]
  - PROTHROMBIN TIME PROLONGED [None]
  - HAEMORRHAGIC INFARCTION [None]
  - PLANTAR FASCIITIS [None]
  - HYPERCOAGULATION [None]
